FAERS Safety Report 8421113-3 (Version None)
Quarter: 2012Q2

REPORT INFORMATION
  Report Type: 
  Country: None (occurrence: None)
  Receive Date: 20120604
  Receipt Date: 20120604
  Transmission Date: 20120825
  Serious: Yes (Hospitalization)
  Sender: FDA-Public Use
  Company Number: None

PATIENT
  Age: 64 Year
  Sex: Male
  Weight: 190.2 kg

DRUGS (1)
  1. ATENOLOL AND CHLORTHALIDONE [Suspect]
     Indication: HYPERTENSION
     Dosage: 1 UNITS EVERY DAY PO
     Route: 048
     Dates: start: 20080905, end: 20120524

REACTIONS (4)
  - DIZZINESS [None]
  - BRADYCARDIA [None]
  - LOSS OF CONSCIOUSNESS [None]
  - COLD SWEAT [None]
